FAERS Safety Report 10640767 (Version 1)
Quarter: 2014Q4

REPORT INFORMATION
  Report Type: Spontaneous
  Country: None (occurrence: None)
  Receive Date: 20141205
  Receipt Date: 20141205
  Transmission Date: 20150529
  Serious: Yes (Hospitalization, Other)
  Sender: FDA-Public Use
  Company Number: RAP-0270-2014

PATIENT
  Sex: Female

DRUGS (1)
  1. PROCYSBI DELAYED-RELEASE [Suspect]
     Active Substance: CYSTEAMINE BITARTRATE
     Indication: CYSTINOSIS
     Dosage: 1250 MG (625 MG, 1 IN 12 HR)
     Route: 048
     Dates: start: 201403

REACTIONS (4)
  - Abdominal pain [None]
  - Vomiting [None]
  - Nausea [None]
  - Clostridium difficile infection [None]
